FAERS Safety Report 8606826-2 (Version None)
Quarter: 2012Q3

REPORT INFORMATION
  Report Type: 
  Country: None (occurrence: None)
  Receive Date: 20120820
  Receipt Date: 20120810
  Transmission Date: 20120928
  Serious: No
  Sender: FDA-Public Use
  Company Number: US-ASTRAZENECA-2012SE48838

PATIENT
  Age: 81 Year
  Sex: Male
  Weight: 63.5 kg

DRUGS (13)
  1. LEFLUNOMIDE [Concomitant]
  2. LOVAZA [Concomitant]
  3. CALCIUM CARBONATE [Concomitant]
  4. POTASSIUM [Concomitant]
  5. STOOL SOFTENER [Concomitant]
  6. ALBUTEROL [Concomitant]
  7. ENABLEX [Concomitant]
     Indication: RENAL DISORDER
  8. VITAMIN D [Concomitant]
  9. ASPIRIN [Concomitant]
  10. SPIRIVA [Concomitant]
  11. PULMICORT FLEXHALER [Suspect]
     Indication: CHRONIC OBSTRUCTIVE PULMONARY DISEASE
     Route: 055
     Dates: start: 20070101
  12. MUCINEX [Concomitant]
  13. LASIX [Concomitant]
     Indication: OEDEMA PERIPHERAL

REACTIONS (1)
  - DEMENTIA [None]
